FAERS Safety Report 9628931 (Version 2)
Quarter: 2013Q4

REPORT INFORMATION
  Report Type: Spontaneous
  Country: US (occurrence: US)
  Receive Date: 20131017
  Receipt Date: 20131126
  Transmission Date: 20140711
  Serious: Yes (Death, Hospitalization)
  Sender: FDA-Public Use
  Company Number: US-SA-2013SA101796

PATIENT
  Age: 56 Year
  Sex: Female

DRUGS (16)
  1. ZALTRAP [Suspect]
     Route: 065
     Dates: start: 20130617
  2. ZALTRAP [Suspect]
     Route: 065
     Dates: start: 20130715
  3. ZALTRAP [Suspect]
     Route: 065
     Dates: start: 20130729
  4. ZALTRAP [Suspect]
     Route: 065
     Dates: start: 20130826
  5. 5-FU [Suspect]
     Route: 065
     Dates: start: 20130617
  6. 5-FU [Suspect]
     Route: 065
     Dates: start: 20130715
  7. 5-FU [Suspect]
     Route: 065
     Dates: start: 20130729
  8. 5-FU [Suspect]
     Route: 065
     Dates: start: 20130826
  9. LEUCOVORIN [Suspect]
     Route: 065
     Dates: start: 20130617
  10. LEUCOVORIN [Suspect]
     Route: 065
     Dates: start: 20130715
  11. LEUCOVORIN [Suspect]
     Route: 065
     Dates: start: 20130729
  12. LEUCOVORIN [Suspect]
     Route: 065
     Dates: start: 20130826
  13. IRINOTECAN [Suspect]
     Route: 065
     Dates: start: 20130617
  14. IRINOTECAN [Suspect]
     Route: 065
     Dates: start: 20130715
  15. IRINOTECAN [Suspect]
     Route: 065
     Dates: start: 20130729
  16. IRINOTECAN [Suspect]
     Route: 065
     Dates: start: 20130826

REACTIONS (3)
  - Intestinal perforation [Fatal]
  - Neutropenia [Fatal]
  - Sepsis [Fatal]
